FAERS Safety Report 7581347-7 (Version None)
Quarter: 2011Q2

REPORT INFORMATION
  Report Type: 
  Country: None (occurrence: None)
  Receive Date: 20110629
  Receipt Date: 20110620
  Transmission Date: 20111010
  Serious: Yes (Hospitalization, Other)
  Sender: FDA-Public Use
  Company Number: US-ASTRAZENECA-2010SE23580

PATIENT
  Age: 24578 Day
  Sex: Female
  Weight: 54 kg

DRUGS (2)
  1. SEROQUEL [Suspect]
     Indication: BIPOLAR DISORDER
     Route: 048
     Dates: start: 20000101
  2. SEROQUEL [Suspect]
     Route: 048

REACTIONS (4)
  - LIMB OPERATION [None]
  - AMNESIA [None]
  - SKIN LESION EXCISION [None]
  - DELAYED RECOVERY FROM ANAESTHESIA [None]
